FAERS Safety Report 8408980-4 (Version None)
Quarter: 2012Q2

REPORT INFORMATION
  Report Type: 
  Country: None (occurrence: None)
  Receive Date: 20120604
  Receipt Date: 20120401
  Transmission Date: 20120825
  Serious: No
  Sender: FDA-Public Use
  Company Number: US-NOVEN-12US004404

PATIENT
  Sex: Male
  Weight: 29.932 kg

DRUGS (2)
  1. DAYTRANA [Suspect]
     Dosage: 10 MG, UNK
     Route: 062
     Dates: start: 20120201, end: 20120330
  2. DAYTRANA [Suspect]
     Indication: ATTENTION DEFICIT/HYPERACTIVITY DISORDER
     Dosage: 15 MG, UNK
     Route: 062
     Dates: start: 20120401

REACTIONS (3)
  - ABNORMAL BEHAVIOUR [None]
  - ABDOMINAL PAIN UPPER [None]
  - NAUSEA [None]
